FAERS Safety Report 23415721 (Version 8)
Quarter: 2024Q4

REPORT INFORMATION
  Report Type: Report from Study
  Country: IN (occurrence: IN)
  Receive Date: 20240118
  Receipt Date: 20241206
  Transmission Date: 20250114
  Serious: Yes (Hospitalization, Other)
  Sender: NOVARTIS
  Company Number: IN-002147023-NVSC2024IN007982

PATIENT
  Age: 78 Year
  Sex: Female
  Weight: 63 kg

DRUGS (2)
  1. RIBOCICLIB [Suspect]
     Active Substance: RIBOCICLIB
     Indication: Breast cancer metastatic
     Dosage: 200 MG, QD
     Route: 048
     Dates: start: 20221129
  2. RIBOCICLIB [Suspect]
     Active Substance: RIBOCICLIB
     Dosage: 600 MG, QD
     Route: 048

REACTIONS (15)
  - Full blood count increased [Recovered/Resolved]
  - Liver function test increased [Recovered/Resolved]
  - Blood urea increased [Recovered/Resolved]
  - Blood creatinine increased [Recovered/Resolved]
  - Gastrointestinal toxicity [Unknown]
  - Metastases to lymph nodes [Unknown]
  - Haemoglobin abnormal [Unknown]
  - Haematocrit abnormal [Unknown]
  - Mean cell volume abnormal [Unknown]
  - Mean cell haemoglobin increased [Unknown]
  - Eosinophil count abnormal [Unknown]
  - White blood cell count abnormal [Unknown]
  - Red cell distribution width abnormal [Unknown]
  - Red blood cell count abnormal [Unknown]
  - Eastern Cooperative Oncology Group performance status abnormal [Unknown]

NARRATIVE: CASE EVENT DATE: 20240801
